FAERS Safety Report 18980967 (Version 1)
Quarter: 2021Q1

REPORT INFORMATION
  Report Type: Report from Study
  Country: GB (occurrence: GB)
  Receive Date: 20210308
  Receipt Date: 20210308
  Transmission Date: 20210420
  Serious: Yes (Other)
  Sender: FDA-Public Use
  Company Number: NVSC2020GB245594

PATIENT
  Sex: Male

DRUGS (1)
  1. ERELZI (ETANERCEPT) [Suspect]
     Active Substance: ETANERCEPT
     Indication: RHEUMATOID ARTHRITIS
     Dosage: 50 MG, QW (1W)
     Route: 065

REACTIONS (2)
  - Lower respiratory tract infection [Unknown]
  - Product dose omission issue [Unknown]
